FAERS Safety Report 7541500-5 (Version None)
Quarter: 2011Q2

REPORT INFORMATION
  Report Type: 
  Country: None (occurrence: None)
  Receive Date: 20110613
  Receipt Date: 20110606
  Transmission Date: 20111010
  Serious: No
  Sender: FDA-Public Use
  Company Number: US-BIOGENIDEC-2011BI020942

PATIENT
  Age: 54 Year
  Sex: Female

DRUGS (2)
  1. INSULIN [Concomitant]
     Indication: BLOOD GLUCOSE INCREASED
  2. AVONEX [Suspect]
     Indication: MULTIPLE SCLEROSIS
     Route: 030
     Dates: start: 20090710

REACTIONS (3)
  - SOMNOLENCE [None]
  - BLOOD GLUCOSE DECREASED [None]
  - BLOOD GLUCOSE INCREASED [None]
